FAERS Safety Report 10143153 (Version 1)
Quarter: 2014Q2

REPORT INFORMATION
  Report Type: Spontaneous
  Country: US (occurrence: US)
  Receive Date: 20140430
  Receipt Date: 20140430
  Transmission Date: 20141212
  Serious: No
  Sender: FDA-Public Use
  Company Number: US-BAYER-2014-063584

PATIENT
  Age: 67 Year
  Sex: Female
  Weight: 73 kg

DRUGS (2)
  1. ALEVE GELCAPS [Suspect]
     Indication: BACK PAIN
     Dosage: 1 DF, PRN
     Route: 048
     Dates: start: 201403, end: 201404
  2. NEXIUM [Concomitant]

REACTIONS (1)
  - Tinnitus [Recovered/Resolved]
